FAERS Safety Report 7491548-4 (Version None)
Quarter: 2011Q2

REPORT INFORMATION
  Report Type: 
  Country: None (occurrence: None)
  Receive Date: 20110519
  Receipt Date: 20110510
  Transmission Date: 20111010
  Serious: Yes (Other)
  Sender: FDA-Public Use
  Company Number: PHHY2011CA30776

PATIENT

DRUGS (1)
  1. TRIAMCINOLONE [Suspect]

REACTIONS (2)
  - EYE HAEMORRHAGE [None]
  - EYE INFECTION [None]
